FAERS Safety Report 22870010 (Version 3)
Quarter: 2024Q2

REPORT INFORMATION
  Report Type: Spontaneous
  Country: GB (occurrence: GB)
  Receive Date: 20230827
  Receipt Date: 20240425
  Transmission Date: 20240716
  Serious: Yes (Disabling, Other)
  Sender: FDA-Public Use
  Company Number: GB-MHRA-MED-202308120845425450-HTQGK

PATIENT
  Age: 31 Year
  Sex: Male

DRUGS (1)
  1. MIRTAZAPINE [Suspect]
     Active Substance: MIRTAZAPINE
     Indication: Product used for unknown indication
     Dosage: 30 MILLIGRAM (EVENING)
     Route: 065
     Dates: start: 20221111, end: 20230425

REACTIONS (13)
  - Loss of libido [Not Recovered/Not Resolved]
  - Erectile dysfunction [Not Recovered/Not Resolved]
  - Withdrawal syndrome [Not Recovered/Not Resolved]
  - Fatigue [Not Recovered/Not Resolved]
  - Insomnia [Recovering/Resolving]
  - Palpitations [Recovering/Resolving]
  - Anhedonia [Recovering/Resolving]
  - Genital hypoaesthesia [Recovering/Resolving]
  - Cognitive disorder [Recovering/Resolving]
  - Sneezing [Recovering/Resolving]
  - Dry skin [Recovering/Resolving]
  - Nausea [Recovered/Resolved]
  - Weight decreased [Recovered/Resolved]

NARRATIVE: CASE EVENT DATE: 20221111
